FAERS Safety Report 6774788-9 (Version None)
Quarter: 2010Q2

REPORT INFORMATION
  Report Type: 
  Country: None (occurrence: None)
  Receive Date: 20100617
  Receipt Date: 20100517
  Transmission Date: 20101027
  Serious: Yes (Death, Hospitalization)
  Sender: FDA-Public Use
  Company Number: JP-ROCHE-709681

PATIENT
  Sex: Male

DRUGS (7)
  1. CAPECITABINE [Suspect]
     Indication: COLON CANCER
     Dosage: DRUG REPORTED AS XELODA 300
     Route: 048
     Dates: start: 20090330, end: 20090408
  2. TS-1 [Suspect]
     Indication: COLON CANCER
     Dosage: FREQUENCY: 4 WEEKS ADMINISTRATION FOLLOWED BY 2 WEEKS REST
     Route: 048
     Dates: start: 20090101, end: 20090712
  3. MAINTATE [Concomitant]
     Route: 048
     Dates: end: 20090612
  4. SIMVASTATIN [Concomitant]
     Route: 048
     Dates: end: 20090712
  5. GASTER D [Concomitant]
     Route: 048
     Dates: end: 20090712
  6. NU-LOTAN [Concomitant]
     Route: 048
     Dates: end: 20090712
  7. PYDOXAL [Concomitant]
     Dosage: DRUG REPORTED AS PYDOXAL TAB
     Route: 048
     Dates: start: 20090330, end: 20090408

REACTIONS (9)
  - BLOOD CHLORIDE INCREASED [None]
  - BLOOD CREATININE INCREASED [None]
  - BLOOD LACTATE DEHYDROGENASE INCREASED [None]
  - BLOOD SODIUM DECREASED [None]
  - BLOOD UREA INCREASED [None]
  - DEHYDRATION [None]
  - DIZZINESS [None]
  - GASTROINTESTINAL PERFORATION [None]
  - MALAISE [None]
